FAERS Safety Report 22284089 (Version 2)
Quarter: 2023Q2

REPORT INFORMATION
  Report Type: Spontaneous
  Country: US (occurrence: US)
  Receive Date: 20230504
  Receipt Date: 20230510
  Transmission Date: 20230722
  Serious: Yes (Hospitalization)
  Sender: FDA-Public Use
  Company Number: US-JNJFOC-20230502620

PATIENT
  Age: 16 Month
  Sex: Female

DRUGS (3)
  1. EVICEL [Suspect]
     Active Substance: FIBRINOGEN HUMAN\THROMBIN HUMAN
     Indication: Surgery
     Route: 065
  2. CLINDAMYCIN [Concomitant]
     Active Substance: CLINDAMYCIN
     Indication: Surgery
     Route: 042
  3. HYDROCORTISONE [Concomitant]
     Active Substance: HYDROCORTISONE
     Indication: Surgery
     Route: 042

REACTIONS (4)
  - Blood sodium abnormal [Unknown]
  - Swelling face [Unknown]
  - Pneumonia klebsiella [Unknown]
  - Off label use [Unknown]
